FAERS Safety Report 11252682 (Version 1)
Quarter: 2015Q3

REPORT INFORMATION
  Report Type: Spontaneous
  Country: SE (occurrence: SE)
  Receive Date: 20150708
  Receipt Date: 20150708
  Transmission Date: 20151125
  Serious: Yes (Death)
  Sender: FDA-Public Use
  Company Number: SE-AMEDRA PHARMACEUTICALS LLC-2015AMD00130

PATIENT
  Age: 31 Year
  Sex: Male
  Weight: 140 kg

DRUGS (7)
  1. CLOMIPRAMINE [Suspect]
     Active Substance: CLOMIPRAMINE
     Dosage: 375 MG, 1X/DAY
  2. BUPRENORPHINE. [Concomitant]
     Active Substance: BUPRENORPHINE
  3. TRAMADOL. [Suspect]
     Active Substance: TRAMADOL
  4. UNSPECIFIED PRODUCT [Concomitant]
  5. LISDEXAMPHETAMINE [Suspect]
     Active Substance: LISDEXAMFETAMINE
     Dosage: 130 MG, 1X/DAY
  6. UNSPECIFIED ^FAT BURNER^ PRODUCTS [Suspect]
     Active Substance: UNSPECIFIED INGREDIENT
  7. FLUNITRAZEPAM [Suspect]
     Active Substance: FLUNITRAZEPAM
     Dosage: 1 MG, 1X/DAY

REACTIONS (2)
  - Adrenergic syndrome [Fatal]
  - Drug interaction [Fatal]
